FAERS Safety Report 11092489 (Version 1)
Quarter: 2015Q2

REPORT INFORMATION
  Report Type: Report from Study
  Country: US (occurrence: US)
  Receive Date: 20150506
  Receipt Date: 20150506
  Transmission Date: 20150821
  Serious: Yes (Other)
  Sender: FDA-Public Use
  Company Number: US-ROCHE-1571506

PATIENT
  Sex: Female
  Weight: 66.74 kg

DRUGS (2)
  1. LUCENTIS [Suspect]
     Active Substance: RANIBIZUMAB
     Indication: RETINAL VEIN OCCLUSION
     Dosage: ONCE A MONTH LEFT EYE
     Route: 050
     Dates: end: 201502
  2. AVASTIN [Suspect]
     Active Substance: BEVACIZUMAB
     Indication: RETINAL VEIN OCCLUSION
     Dosage: ONCE A MONTH LEFT EYE
     Route: 050

REACTIONS (7)
  - Eye pain [Unknown]
  - Lacrimation increased [Unknown]
  - Eyelid function disorder [Unknown]
  - Eye inflammation [Unknown]
  - Visual impairment [Unknown]
  - Drug ineffective [Unknown]
  - Ocular hyperaemia [Unknown]
